FAERS Safety Report 24003019 (Version 1)
Quarter: 2024Q2

REPORT INFORMATION
  Report Type: Spontaneous
  Country: US (occurrence: US)
  Receive Date: 20240624
  Receipt Date: 20240624
  Transmission Date: 20240716
  Serious: No
  Sender: FDA-Public Use
  Company Number: US-SA-SAC20240618000064

PATIENT
  Sex: Female

DRUGS (14)
  1. DUPIXENT [Suspect]
     Active Substance: DUPILUMAB
     Indication: Dermatitis atopic
     Dosage: 300 MG, QOW
     Route: 058
  2. AZITHROMYCIN [Concomitant]
     Active Substance: AZITHROMYCIN
     Route: 048
  3. CLOBETASOL [Concomitant]
     Active Substance: CLOBETASOL
  4. ERYTHROMYCIN [Concomitant]
     Active Substance: ERYTHROMYCIN
  5. ESTRADIOL [Concomitant]
     Active Substance: ESTRADIOL
     Route: 048
  6. FLUOCINONIDE [Concomitant]
     Active Substance: FLUOCINONIDE
  7. PROGESTERONE [Concomitant]
     Active Substance: PROGESTERONE
  8. TESTOSTERONE [Concomitant]
     Active Substance: TESTOSTERONE
  9. TRAZODONE [Concomitant]
     Active Substance: TRAZODONE HYDROCHLORIDE
     Route: 048
  10. TRETINOIN [Concomitant]
     Active Substance: TRETINOIN
  11. UNITHROID [Concomitant]
     Active Substance: LEVOTHYROXINE SODIUM
     Route: 048
  12. VALACYCLOVIR [Concomitant]
     Active Substance: VALACYCLOVIR HYDROCHLORIDE
     Route: 048
  13. TRIAMCINOLONE ACETONIDE [Concomitant]
     Active Substance: TRIAMCINOLONE ACETONIDE
  14. TRIAMCINOLONE [Concomitant]
     Active Substance: TRIAMCINOLONE

REACTIONS (1)
  - Sleep disorder [Unknown]
